FAERS Safety Report 6849015-4 (Version None)
Quarter: 2010Q3

REPORT INFORMATION
  Report Type: 
  Country: None (occurrence: None)
  Receive Date: 20100716
  Receipt Date: 20100707
  Transmission Date: 20110219
  Serious: Yes (Other)
  Sender: FDA-Public Use
  Company Number: GR-AMGEN-QUU423506

PATIENT
  Age: 50 Year
  Sex: Male

DRUGS (2)
  1. ENBREL [Suspect]
     Indication: PSORIATIC ARTHROPATHY
     Route: 058
     Dates: start: 20100601, end: 20100701
  2. METHOTREXATE [Concomitant]
     Indication: PSORIATIC ARTHROPATHY
     Dosage: 10MG WEEKLY
     Route: 048
     Dates: start: 20100601

REACTIONS (3)
  - FACIAL PARESIS [None]
  - HEADACHE [None]
  - HERPES ZOSTER INFECTION NEUROLOGICAL [None]
